FAERS Safety Report 18904075 (Version 2)
Quarter: 2021Q3

REPORT INFORMATION
  Report Type: Spontaneous
  Country: FR (occurrence: FR)
  Receive Date: 20210217
  Receipt Date: 20210813
  Transmission Date: 20211014
  Serious: Yes (Life-Threatening, Hospitalization, Other)
  Sender: FDA-Public Use
  Company Number: FR-SA-2021SA054057

PATIENT
  Age: 79 Year
  Sex: Female

DRUGS (8)
  1. GABAPENTIN. [Suspect]
     Active Substance: GABAPENTIN
     Indication: WRONG PRODUCT ADMINISTERED
     Dosage: 300 MG, QD
     Route: 048
     Dates: start: 20210109, end: 20210109
  2. LERCANIDIPINE HYDROCHLORIDE [Suspect]
     Active Substance: LERCANIDIPINE HYDROCHLORIDE
     Indication: WRONG PRODUCT ADMINISTERED
     Dosage: 1 DF, QD
     Route: 048
     Dates: start: 20210109, end: 20210109
  3. MACROGOL [Concomitant]
     Active Substance: POLYETHYLENE GLYCOLS
     Indication: WRONG PRODUCT ADMINISTERED
     Dosage: 10 G, QD
     Route: 048
     Dates: start: 20210109, end: 20210109
  4. PROPRANOLOL HYDROCHLORIDE. [Suspect]
     Active Substance: PROPRANOLOL HYDROCHLORIDE
     Indication: WRONG PRODUCT ADMINISTERED
     Dosage: 40 MG, QD
     Route: 048
     Dates: start: 20210109, end: 20210109
  5. DAFALGAN [Concomitant]
     Active Substance: ACETAMINOPHEN
     Indication: WRONG PRODUCT ADMINISTERED
     Dosage: 1 DF, QD
     Route: 048
     Dates: start: 20210109, end: 20210109
  6. OXAZEPAM. [Suspect]
     Active Substance: OXAZEPAM
     Indication: WRONG PRODUCT ADMINISTERED
     Dosage: 1 DF, QD
     Route: 048
     Dates: start: 20210109, end: 20210109
  7. IRBESARTAN. [Suspect]
     Active Substance: IRBESARTAN
     Indication: WRONG PRODUCT ADMINISTERED
     Dosage: 300 MG, QD
     Route: 048
     Dates: start: 20210109, end: 20210109
  8. MODOPAR [Suspect]
     Active Substance: BENSERAZIDE HYDROCHLORIDE\LEVODOPA
     Indication: WRONG PRODUCT ADMINISTERED
     Dosage: 1 DF, QD
     Route: 048
     Dates: start: 20210109, end: 20210109

REACTIONS (4)
  - Cardio-respiratory arrest [Recovered/Resolved]
  - Wrong product administered [Unknown]
  - Coma [Recovered/Resolved]
  - Hypotension [Recovered/Resolved]

NARRATIVE: CASE EVENT DATE: 20210109
